FAERS Safety Report 10684650 (Version 16)
Quarter: 2022Q1

REPORT INFORMATION
  Report Type: Spontaneous
  Country: GB (occurrence: GB)
  Receive Date: 20141231
  Receipt Date: 20220330
  Transmission Date: 20220424
  Serious: Yes (Life-Threatening, Hospitalization, Congenital Anomaly, Other)
  Sender: FDA-Public Use
  Company Number: None

PATIENT
  Age: 1 Day
  Sex: Female
  Weight: 2.55 kg

DRUGS (14)
  1. COCODAMOL [Suspect]
     Active Substance: ACETAMINOPHEN\CODEINE PHOSPHATE
     Indication: Foetal exposure during pregnancy
     Dosage: STAGGERED PARACETAMOL OVERDOSE(UNINTENTIONAL) OVER WEEKS AND DAYS PRIOR TO DELIVERY
     Route: 064
  2. COCODAMOL [Suspect]
     Active Substance: ACETAMINOPHEN\CODEINE PHOSPHATE
     Dosage: UNK UNK, QD
     Route: 064
  3. ACETAMINOPHEN [Suspect]
     Active Substance: ACETAMINOPHEN
     Indication: Foetal exposure during pregnancy
     Dosage: UNK, UP TO FOUR TIMES A DAY
     Route: 064
  4. ACETAMINOPHEN [Suspect]
     Active Substance: ACETAMINOPHEN
     Dosage: MATERNAL DOSE: 4 OT, QD
     Route: 064
  5. ACETAMINOPHEN\CODEINE PHOSPHATE [Suspect]
     Active Substance: ACETAMINOPHEN\CODEINE PHOSPHATE
     Indication: Foetal exposure during pregnancy
     Dosage: MOTHER DOSE: 4 MG, QD
     Route: 064
  6. ACETAMINOPHEN\CODEINE PHOSPHATE [Suspect]
     Active Substance: ACETAMINOPHEN\CODEINE PHOSPHATE
     Dosage: MOTHER DOSE: 16 G, QD
     Route: 064
  7. PERFALGAN [Suspect]
     Active Substance: ACETAMINOPHEN
     Indication: Foetal exposure during pregnancy
     Dosage: STAGGERED PARACETAMOL OVERDOSE(UNINTENTIONAL) OVER WEEKS AND DAYS PRIOR TO DELIVERY
     Route: 064
  8. PERFALGAN [Suspect]
     Active Substance: ACETAMINOPHEN
     Dosage: MATERNAL DOSE: UNKNOWN (UP TO 4 TIMES A DAY)
     Route: 064
  9. CODEINE [Suspect]
     Active Substance: CODEINE
     Indication: Foetal exposure during pregnancy
     Dosage: MATERNAL DOSE: 4 OT, QD
     Route: 064
  10. FLUOXETINE [Concomitant]
     Active Substance: FLUOXETINE HYDROCHLORIDE
     Indication: Foetal exposure during pregnancy
     Dosage: (MATERNAL DOSE:UNKNOWN)
     Route: 064
  11. METRONIDAZOLE [Concomitant]
     Active Substance: METRONIDAZOLE
     Indication: Foetal exposure during pregnancy
     Dosage: (MATERNAL DOSE:UNKNOWN)
     Route: 064
  12. ENOXAPARIN [Concomitant]
     Active Substance: ENOXAPARIN
     Indication: Foetal exposure during pregnancy
     Dosage: (MATERNAL DOSE:UNKNOWN)
     Route: 064
  13. CEPHRADINE [Concomitant]
     Active Substance: CEPHRADINE
     Indication: Foetal exposure during pregnancy
     Dosage: (MATERNAL DOSE: UNKNOWN)
     Route: 064
  14. MORPHINE HYDROCHLORIDE [Concomitant]
     Active Substance: MORPHINE HYDROCHLORIDE
     Indication: Foetal exposure during pregnancy
     Dosage: UNK
     Route: 064

REACTIONS (28)
  - Malaise [Unknown]
  - Jaundice neonatal [Recovered/Resolved]
  - Gait inability [Unknown]
  - Premature baby [Unknown]
  - Tremor [Unknown]
  - Respiratory distress [Recovered/Resolved]
  - Developmental delay [Not Recovered/Not Resolved]
  - Foetal monitoring abnormal [Unknown]
  - Language disorder [Unknown]
  - Incorrect product administration duration [Unknown]
  - Drug withdrawal syndrome neonatal [Recovered/Resolved]
  - Low birth weight baby [Unknown]
  - Drug dependence [Unknown]
  - Foetal arrhythmia [Recovered/Resolved]
  - Gait inability [Unknown]
  - Aphasia [Unknown]
  - Liver function test abnormal [Recovered/Resolved]
  - Hepatic function abnormal [Recovered/Resolved]
  - Heart rate irregular [Unknown]
  - Foetal exposure during pregnancy [Unknown]
  - Overdose [Unknown]
  - Hepatotoxicity [Recovered/Resolved with Sequelae]
  - Gait inability [Unknown]
  - Gingival discomfort [Unknown]
  - Tremor [Unknown]
  - Malaise [Unknown]
  - Dependence [Recovered/Resolved]
  - Dependence [Unknown]
